FAERS Safety Report 8599302-7 (Version None)
Quarter: 2012Q3

REPORT INFORMATION
  Report Type: 
  Country: None (occurrence: None)
  Receive Date: 20120816
  Receipt Date: 20120611
  Transmission Date: 20120928
  Serious: No
  Sender: FDA-Public Use
  Company Number: US-AMGEN-USASP2012036221

PATIENT
  Age: 49 Year
  Sex: Female

DRUGS (5)
  1. NEUPOGEN [Suspect]
     Indication: HEPATITIS C
     Dosage: UNK UNK, 2 TIMES/WK
  2. RIBAVIRIN [Concomitant]
  3. RIBAVIRIN [Suspect]
     Indication: HEPATITIS C
     Dosage: 1200 MG, QD
     Dates: start: 20120413
  4. PEGINTERFERON ALFA-2A [Concomitant]
  5. PEGINTERFERON ALFA-2A [Suspect]
     Indication: HEPATITIS C
     Dosage: 90 MUG, QWK
     Dates: start: 20120413

REACTIONS (3)
  - HAEMATOCRIT DECREASED [None]
  - RED BLOOD CELL COUNT DECREASED [None]
  - PLATELET COUNT DECREASED [None]
